FAERS Safety Report 25723509 (Version 3)
Quarter: 2025Q3

REPORT INFORMATION
  Report Type: Spontaneous
  Country: US (occurrence: US)
  Receive Date: 20250825
  Receipt Date: 20250925
  Transmission Date: 20251020
  Serious: No
  Sender: PFIZER
  Company Number: US-PFIZER INC-202500167284

PATIENT
  Age: 15 Year
  Sex: Male
  Weight: 47.63 kg

DRUGS (2)
  1. GENOTROPIN [Suspect]
     Active Substance: SOMATROPIN
     Indication: Growth hormone deficiency
  2. ANASTROZOLE [Concomitant]
     Active Substance: ANASTROZOLE
     Indication: Growth disorder
     Dosage: 1 MG, 1X/DAY
     Route: 048

REACTIONS (2)
  - Drug dose omission by device [Unknown]
  - Device issue [Unknown]

NARRATIVE: CASE EVENT DATE: 20250819
